FAERS Safety Report 21635941 (Version 1)
Quarter: 2022Q4

REPORT INFORMATION
  Report Type: Spontaneous
  Country: US (occurrence: US)
  Receive Date: 20221123
  Receipt Date: 20221123
  Transmission Date: 20230113
  Serious: No
  Sender: FDA-Public Use
  Company Number: US-GLENMARK PHARMACEUTICALS-2022GMK072444

PATIENT

DRUGS (1)
  1. ZONISAMIDE [Suspect]
     Active Substance: ZONISAMIDE
     Indication: Seizure
     Dosage: 500 MILLIGRAM, QD (5 TABLETS PER DAY)
     Route: 048

REACTIONS (3)
  - Hypoaesthesia [Unknown]
  - Recalled product administered [Unknown]
  - Rash [Unknown]
